FAERS Safety Report 8990878 (Version 1)
Quarter: 2012Q4

REPORT INFORMATION
  Report Type: 
  Country: GB (occurrence: None)
  Receive Date: 20121220
  Receipt Date: 20121220
  Transmission Date: 20130627
  Serious: Yes (Other)
  Sender: FDA-Public Use
  Company Number: IMP_06118_2012

PATIENT
  Age: 30 Year
  Sex: Female

DRUGS (1)
  1. MINOCYCLINE [Suspect]
     Dosage: [cumulative total dose was 70g]

REACTIONS (2)
  - Vasculitis [None]
  - Polyarteritis nodosa [None]
